FAERS Safety Report 17664909 (Version 5)
Quarter: 2020Q2

REPORT INFORMATION
  Report Type: Spontaneous
  Country: US (occurrence: US)
  Receive Date: 20200414
  Receipt Date: 20200430
  Transmission Date: 20200713
  Serious: No
  Sender: FDA-Public Use
  Company Number: US-PFIZER INC-2020150960

PATIENT
  Age: 56 Year
  Sex: Male
  Weight: 100.7 kg

DRUGS (1)
  1. SILDENAFIL CITRATE. [Suspect]
     Active Substance: SILDENAFIL CITRATE
     Indication: ERECTILE DYSFUNCTION
     Dosage: 100 MG, UNK (TAKES IT WHEN HE IS HAVING SEX)
     Route: 048
     Dates: start: 2020

REACTIONS (3)
  - Expired product administered [Unknown]
  - Drug ineffective [Not Recovered/Not Resolved]
  - Attention deficit hyperactivity disorder [Unknown]
